FAERS Safety Report 4714791-3 (Version None)
Quarter: 2005Q3

REPORT INFORMATION
  Report Type: 
  Country: None (occurrence: None)
  Receive Date: 20050714
  Receipt Date: 20050714
  Transmission Date: 20060218
  Serious: Yes (Hospitalization)
  Sender: FDA-Public Use
  Company Number: None

PATIENT
  Age: 60 Year
  Sex: Female

DRUGS (4)
  1. PREDNISONE; DELTASONE; PHARMACIA AND UPJOHN; ADRENAL [Suspect]
     Indication: HYPERTHYROIDISM
     Dosage: ORAL ; 40.0 MILLIGRAM
     Route: 048
     Dates: start: 20050610, end: 20050610
  2. HYDOCORTISONE; CORTEF;PRIZER; ADRENAL CORTICOSTERORIDS; [Suspect]
     Indication: HYPERTHYROIDISM
     Dosage: INTRAVENOUS 100.0
     Route: 042
     Dates: start: 20050610, end: 20050610
  3. PROPYLTHIOURACIL [Concomitant]
  4. COUMADIN [Concomitant]

REACTIONS (15)
  - AGITATION [None]
  - ALANINE AMINOTRANSFERASE INCREASED [None]
  - ASPARTATE AMINOTRANSFERASE INCREASED [None]
  - BLOOD BILIRUBIN INCREASED [None]
  - CARDIAC FAILURE CONGESTIVE [None]
  - CONFUSIONAL STATE [None]
  - DELIRIUM [None]
  - HEART RATE INCREASED [None]
  - HEPATIC CONGESTION [None]
  - HYPERTHYROIDISM [None]
  - HYPOTENSION [None]
  - MENTAL STATUS CHANGES [None]
  - PARANOIA [None]
  - PSYCHOTIC DISORDER [None]
  - THYROTOXIC CRISIS [None]
